FAERS Safety Report 6709744-X (Version None)
Quarter: 2010Q2

REPORT INFORMATION
  Report Type: 
  Country: None (occurrence: None)
  Receive Date: 20100504
  Receipt Date: 20100413
  Transmission Date: 20101027
  Serious: Yes (Other)
  Sender: FDA-Public Use
  Company Number: US-ROCHE-700510

PATIENT
  Sex: Female

DRUGS (3)
  1. AVASTIN [Suspect]
     Dosage: LAST DOSE PRIOR TO SAE: 25 MARCH 2010
     Route: 031
     Dates: start: 20100219
  2. DIOVAN [Concomitant]
     Dosage: DRUG REPORTED: DIOVAN 60
  3. CYMBALTA [Concomitant]
     Dosage: DRUG REPORTED: SYMBALTA 60

REACTIONS (4)
  - DRUG INEFFECTIVE [None]
  - VISUAL FIELD DEFECT [None]
  - VISUAL IMPAIRMENT [None]
  - VITREOUS FLOATERS [None]
